FAERS Safety Report 6814812-8 (Version None)
Quarter: 2010Q3

REPORT INFORMATION
  Report Type: 
  Country: None (occurrence: None)
  Receive Date: 20100702
  Receipt Date: 20100629
  Transmission Date: 20110219
  Serious: Yes (Hospitalization)
  Sender: FDA-Public Use
  Company Number: A0867946A

PATIENT
  Age: 68 Year
  Sex: Male

DRUGS (1)
  1. AVANDIA [Suspect]
     Route: 048
     Dates: start: 20000101, end: 20081201

REACTIONS (2)
  - CARDIAC FAILURE CONGESTIVE [None]
  - PULMONARY ARTERIAL HYPERTENSION [None]
